FAERS Safety Report 9884301 (Version 1)
Quarter: 2014Q1

REPORT INFORMATION
  Report Type: Spontaneous
  Country: US (occurrence: US)
  Receive Date: 20140210
  Receipt Date: 20140210
  Transmission Date: 20141002
  Serious: No
  Sender: FDA-Public Use
  Company Number: US-ALLERGAN-1316000US

PATIENT
  Sex: Female

DRUGS (2)
  1. BOTOX COSMETIC [Suspect]
     Indication: SKIN WRINKLING
     Dosage: UNK, SINGLE
     Dates: start: 201303, end: 201303
  2. JUVEDERM [Suspect]
     Indication: SKIN WRINKLING

REACTIONS (3)
  - Rhinitis [Unknown]
  - Facial pain [Unknown]
  - Erythema [Unknown]
